FAERS Safety Report 5720909-6 (Version None)
Quarter: 2008Q2

REPORT INFORMATION
  Report Type: 
  Country: None (occurrence: None)
  Receive Date: 20080425
  Receipt Date: 20080425
  Transmission Date: 20081010
  Serious: No
  Sender: FDA-Public Use
  Company Number: None

PATIENT
  Sex: Male
  Weight: 90.7194 kg

DRUGS (1)
  1. PRILOSEC [Suspect]
     Indication: DYSPEPSIA
     Dosage: 1X DAILY PO
     Route: 048

REACTIONS (1)
  - DRUG ERUPTION [None]
